FAERS Safety Report 22211281 (Version 1)
Quarter: 2023Q2

REPORT INFORMATION
  Report Type: Spontaneous
  Country: None (occurrence: PL)
  Receive Date: 20230414
  Receipt Date: 20230414
  Transmission Date: 20230721
  Serious: Yes (Other)
  Sender: FDA-Public Use
  Company Number: PL-Therakind Limited-2140333

PATIENT
  Age: 52 Year
  Sex: Male

DRUGS (7)
  1. METHOTREXATE [Suspect]
     Active Substance: METHOTREXATE
     Indication: Graft versus host disease
     Dates: end: 202001
  2. MYCOPHENOLATE MOFETIL [Suspect]
     Active Substance: MYCOPHENOLATE MOFETIL
  3. TACROLIMUS [Suspect]
     Active Substance: TACROLIMUS
  4. CYCLOSPORINE [Suspect]
     Active Substance: CYCLOSPORINE
  5. RUXOLITINIB [Suspect]
     Active Substance: RUXOLITINIB
  6. THYMOGLOBULIN [Suspect]
     Active Substance: LAPINE T-LYMPHOCYTE IMMUNE GLOBULIN
  7. METHYLPREDNISOLONE [Suspect]
     Active Substance: METHYLPREDNISOLONE

REACTIONS (15)
  - Blood bilirubin increased [Recovered/Resolved]
  - Acute graft versus host disease [Recovered/Resolved]
  - Drug intolerance [Unknown]
  - Asthenia [Unknown]
  - Nausea [Not Recovered/Not Resolved]
  - Keratitis [Unknown]
  - Tremor [Unknown]
  - Alanine aminotransferase increased [Not Recovered/Not Resolved]
  - Weight decreased [Unknown]
  - Diarrhoea [Unknown]
  - Gastrointestinal disorder [Unknown]
  - Aspartate aminotransferase increased [Recovered/Resolved]
  - Drug ineffective [Unknown]
  - Yellow skin [Unknown]
  - Product use in unapproved indication [Unknown]
